FAERS Safety Report 4477637-7 (Version None)
Quarter: 2004Q4

REPORT INFORMATION
  Report Type: 
  Country: None (occurrence: None)
  Receive Date: 20041014
  Receipt Date: 20041001
  Transmission Date: 20050328
  Serious: Yes (Other)
  Sender: FDA-Public Use
  Company Number: 2004075218

PATIENT
  Age: 68 Year
  Sex: Female
  Weight: 72.1219 kg

DRUGS (13)
  1. LIPITOR [Suspect]
     Indication: BLOOD CHOLESTEROL INCREASED
     Dosage: 10 MG (10 MG, 1 IN 1 D)
  2. IBUPROFEN [Suspect]
     Indication: ARTHRITIS
     Dosage: (800 MG)
  3. POTASSIUM CHLORIDE [Concomitant]
  4. ESOMEPRAZOLE (ESOMEPRAZOLE) [Concomitant]
  5. LEVOTHYROXINE SODIUM [Concomitant]
  6. ALPRAZOLAM [Concomitant]
  7. FUROSEMIDE [Concomitant]
  8. GLYBURIDE [Concomitant]
  9. VERAPAMIL [Concomitant]
  10. GABAPENTIN [Concomitant]
  11. VALDECOXIB [Concomitant]
  12. ASPIRIN [Concomitant]
  13. PROPACET 100 [Concomitant]

REACTIONS (4)
  - AMNESIA [None]
  - ANEURYSM [None]
  - ARTHRITIS [None]
  - BACK PAIN [None]
